FAERS Safety Report 5826294-3 (Version None)
Quarter: 2008Q3

REPORT INFORMATION
  Report Type: 
  Country: None (occurrence: None)
  Receive Date: 20080729
  Receipt Date: 20080717
  Transmission Date: 20090109
  Serious: Yes (Death, Life-Threatening, Hospitalization, Disabling, Other)
  Sender: FDA-Public Use
  Company Number: DE-PFIZER INC-2008060230

PATIENT
  Sex: Female

DRUGS (3)
  1. ZELDOX (CAPSULES) [Suspect]
     Indication: PSYCHOTIC DISORDER
     Dosage: DAILY DOSE:120MG
     Route: 048
  2. INSULIN [Concomitant]
  3. VALPROIC ACID [Concomitant]

REACTIONS (10)
  - ASPIRATION [None]
  - CARDIOMYOPATHY [None]
  - ELECTROCARDIOGRAM QT PROLONGED [None]
  - HYPOKALAEMIA [None]
  - HYPOXIC ENCEPHALOPATHY [None]
  - PNEUMONIA [None]
  - RHABDOMYOLYSIS [None]
  - THROMBOCYTOPENIA [None]
  - TORSADE DE POINTES [None]
  - VENTRICULAR FIBRILLATION [None]
